FAERS Safety Report 12218985 (Version 1)
Quarter: 2016Q1

REPORT INFORMATION
  Report Type: Spontaneous
  Country: US (occurrence: US)
  Receive Date: 20160329
  Receipt Date: 20160329
  Transmission Date: 20160526
  Serious: No
  Sender: FDA-Public Use
  Company Number: GXBR2015US001044

PATIENT
  Sex: Female

DRUGS (1)
  1. DROSPIRENONE+ETHINYLESTRADIOL [Suspect]
     Active Substance: DROSPIRENONE\ETHINYL ESTRADIOL
     Indication: PREMENSTRUAL SYNDROME
     Dosage: UNK DF, UNK
     Route: 065

REACTIONS (10)
  - Mood swings [Recovered/Resolved]
  - Premenstrual syndrome [Recovered/Resolved]
  - Anger [Recovered/Resolved]
  - Weight increased [Unknown]
  - Irritability [Recovered/Resolved]
  - Crying [Unknown]
  - Breast pain [Recovered/Resolved]
  - Depression [Recovered/Resolved]
  - Disturbance in attention [Unknown]
  - Abdominal distension [Recovered/Resolved]
